FAERS Safety Report 17005516 (Version 1)
Quarter: 2019Q4

REPORT INFORMATION
  Report Type: Spontaneous
  Country: RO (occurrence: RO)
  Receive Date: 20191107
  Receipt Date: 20191107
  Transmission Date: 20200122
  Serious: Yes (Other)
  Sender: FDA-Public Use
  Company Number: RO-ASTRAZENECA-2019SF55288

PATIENT
  Age: 58 Year
  Sex: Male

DRUGS (8)
  1. SORTIS [Concomitant]
     Active Substance: ATORVASTATIN
  2. NITROGLYCERIN. [Concomitant]
     Active Substance: NITROGLYCERIN
  3. TRITACE [Concomitant]
     Active Substance: RAMIPRIL
  4. TERTENSIF [Concomitant]
     Active Substance: INDAPAMIDE
  5. BRILIQUE [Suspect]
     Active Substance: TICAGRELOR
     Indication: ACUTE MYOCARDIAL INFARCTION
     Route: 048
  6. NEBILET [Concomitant]
     Active Substance: NEBIVOLOL
  7. ASPENTER [Concomitant]
     Active Substance: ASPIRIN
  8. BRILIQUE [Suspect]
     Active Substance: TICAGRELOR
     Indication: STENT PLACEMENT
     Route: 048

REACTIONS (2)
  - Arrhythmia supraventricular [Unknown]
  - Treatment noncompliance [Unknown]
